FAERS Safety Report 8542629-5 (Version None)
Quarter: 2012Q3

REPORT INFORMATION
  Report Type: 
  Country: None (occurrence: None)
  Receive Date: 20120727
  Receipt Date: 20120717
  Transmission Date: 20120928
  Serious: Yes (Hospitalization, Other)
  Sender: FDA-Public Use
  Company Number: FR-BRISTOL-MYERS SQUIBB COMPANY-16777765

PATIENT
  Age: 85 Year
  Sex: Female

DRUGS (11)
  1. COUMADIN [Suspect]
     Indication: HYPERTROPHIC CARDIOMYOPATHY
     Route: 048
  2. ASPIRIN [Concomitant]
  3. DIGOXIN [Suspect]
  4. STABLON [Concomitant]
  5. LYRICA [Concomitant]
  6. TERBUTALINE [Concomitant]
     Route: 055
  7. IRBESARTAN AND HYDROCHLOROTHIAZIDE [Concomitant]
  8. SPIRIVA [Concomitant]
     Route: 055
  9. ATARAX [Concomitant]
  10. SYMBICORT [Concomitant]
     Route: 055
  11. BUDESONIDE + FORMOTEROL FUMARATE [Concomitant]
     Route: 055

REACTIONS (5)
  - HYPOCHROMIC ANAEMIA [None]
  - BRADYCARDIA [None]
  - GASTROINTESTINAL HAEMORRHAGE [None]
  - GENERAL PHYSICAL HEALTH DETERIORATION [None]
  - INTERNATIONAL NORMALISED RATIO INCREASED [None]
